FAERS Safety Report 10557314 (Version 1)
Quarter: 2014Q4

REPORT INFORMATION
  Report Type: Spontaneous
  Country: None (occurrence: None)
  Receive Date: 20141030
  Receipt Date: 20141030
  Transmission Date: 20150529
  Serious: Yes (Congenital Anomaly)
  Sender: FDA-Public Use
  Company Number: None

PATIENT
  Age: 0 Day
  Sex: Female

DRUGS (2)
  1. PAXIL [Suspect]
     Active Substance: PAROXETINE HYDROCHLORIDE
     Indication: ANXIETY
  2. PAXIL [Suspect]
     Active Substance: PAROXETINE HYDROCHLORIDE
     Indication: PANIC ATTACK

REACTIONS (6)
  - Language disorder [None]
  - Learning disability [None]
  - Optic nerve hypoplasia [None]
  - Blindness unilateral [None]
  - Foetal exposure during pregnancy [None]
  - Strabismus [None]

NARRATIVE: CASE EVENT DATE: 20050111
